FAERS Safety Report 4433400-4 (Version None)
Quarter: 2004Q3

REPORT INFORMATION
  Report Type: 
  Country: None (occurrence: None)
  Receive Date: 20040824
  Receipt Date: 20040224
  Transmission Date: 20050211
  Serious: Yes (Other)
  Sender: FDA-Public Use
  Company Number: 200410038BFR

PATIENT
  Age: 41 Year
  Sex: Male
  Weight: 89 kg

DRUGS (4)
  1. IZILOX            (MOXIFLOXACIN HYDROCHLORIDE) [Suspect]
     Indication: SINUSITIS
     Dosage: 400 MG, TOTAL DAILY, ORAL
     Route: 048
     Dates: start: 20040120, end: 20040121
  2. DETURGYLONE [Concomitant]
  3. ACETYLCISTEIN [Concomitant]
  4. PREDNISOLONE [Concomitant]

REACTIONS (8)
  - ANXIETY [None]
  - BLINDNESS [None]
  - DYSGRAPHIA [None]
  - HEADACHE [None]
  - MYOPIA [None]
  - VISION BLURRED [None]
  - VISUAL ACUITY REDUCED [None]
  - VISUAL DISTURBANCE [None]
